FAERS Safety Report 22019414 (Version 1)
Quarter: 2023Q1

REPORT INFORMATION
  Report Type: Report from Study
  Country: CN (occurrence: CN)
  Receive Date: 20230222
  Receipt Date: 20230222
  Transmission Date: 20230417
  Serious: Yes (Death, Life-Threatening, Other)
  Sender: FDA-Public Use
  Company Number: CN-Accord-300418

PATIENT

DRUGS (5)
  1. ETOPOSIDE [Suspect]
     Active Substance: ETOPOSIDE
     Indication: Non-Hodgkin^s lymphoma
     Dosage: ON DAYS -7 TO -4
  2. SEMUSTINE [Suspect]
     Active Substance: SEMUSTINE
     Indication: Non-Hodgkin^s lymphoma
     Dosage: ON DAY -8
  3. CYTARABINE [Suspect]
     Active Substance: CYTARABINE
     Indication: Non-Hodgkin^s lymphoma
     Dosage: ON DAYS -7 TO -4
  4. MELPHALAN [Suspect]
     Active Substance: MELPHALAN
     Indication: Non-Hodgkin^s lymphoma
     Dosage: ON DAY -3
  5. GRANULOCYTE COLONY-STIMULATING FACTOR NOS [Concomitant]
     Active Substance: GRANULOCYTE COLONY-STIMULATING FACTOR NOS
     Indication: Non-Hodgkin^s lymphoma
     Dosage: 300 UG/D ON THE 1ST DAY AFTER TRANSFUSION

REACTIONS (3)
  - Neutropenia [Unknown]
  - Renal failure [Fatal]
  - Thrombocytopenia [Unknown]
